FAERS Safety Report 6029371-X (Version None)
Quarter: 2009Q1

REPORT INFORMATION
  Report Type: 
  Country: None (occurrence: None)
  Receive Date: 20090105
  Receipt Date: 20081223
  Transmission Date: 20090719
  Serious: Yes (Death, Life-Threatening)
  Sender: FDA-Public Use
  Company Number: FON_00031-2008

PATIENT
  Sex: Female

DRUGS (5)
  1. ROCALTROL [Suspect]
     Indication: FEMUR FRACTURE
     Dosage: (1 DF ORAL)
     Route: 048
     Dates: start: 20060801, end: 20060901
  2. INSULIN [Concomitant]
  3. ACE INHIBITOR NOS [Concomitant]
  4. FUROSEMIDE [Concomitant]
  5. ANTISTERONE [Concomitant]

REACTIONS (5)
  - CEREBRAL INFARCTION [None]
  - COMA [None]
  - DYSPHORIA [None]
  - LETHARGY [None]
  - SPEECH DISORDER [None]
